FAERS Safety Report 18253079 (Version 1)
Quarter: 2020Q3

REPORT INFORMATION
  Report Type: Spontaneous
  Country: US (occurrence: US)
  Receive Date: 20200910
  Receipt Date: 20200910
  Transmission Date: 20201103
  Serious: No
  Sender: FDA-Public Use
  Company Number: US-GLAXOSMITHKLINE-US2020176774

PATIENT
  Age: 53 Year
  Sex: Male

DRUGS (1)
  1. VOLTAREN ARTHRITIS PAIN [Suspect]
     Active Substance: DICLOFENAC SODIUM
     Indication: ARTHRITIS
     Dosage: UNK
     Dates: start: 20200829, end: 20200831

REACTIONS (4)
  - Application site vesicles [Unknown]
  - Application site pain [Unknown]
  - Application site discharge [Unknown]
  - Application site pruritus [Unknown]
